FAERS Safety Report 8305781 (Version 4)
Quarter: 2013Q1

REPORT INFORMATION
  Report Type: Report from Study
  Country: DE (occurrence: DE)
  Receive Date: 20111221
  Receipt Date: 20130122
  Transmission Date: 20140127
  Serious: Yes (Death, Hospitalization)
  Sender: FDA-Public Use
  Company Number: DE-GLAXOSMITHKLINE-B0770604A

PATIENT
  Age: 75 Year
  Sex: Male
  Weight: 63.7 kg

DRUGS (2)
  1. LAPATINIB [Suspect]
     Indication: GASTROOESOPHAGEAL CANCER
     Dosage: 1500MG PER DAY
     Route: 048
     Dates: start: 20110921, end: 20111210
  2. IBUPROFEN [Concomitant]
     Dates: start: 20111111

REACTIONS (1)
  - General physical health deterioration [Fatal]
